FAERS Safety Report 23965084 (Version 1)
Quarter: 2024Q2

REPORT INFORMATION
  Report Type: Other
  Country: US (occurrence: None)
  Receive Date: 20240612
  Receipt Date: 20240612
  Transmission Date: 20240715
  Serious: Yes (Other)
  Sender: FDA-Public Use
  Company Number: US-ROCHE-3555370

PATIENT

DRUGS (1)
  1. XOLAIR [Suspect]
     Active Substance: OMALIZUMAB
     Indication: Product used for unknown indication
     Route: 065

REACTIONS (11)
  - Angioedema [Unknown]
  - Condition aggravated [Unknown]
  - Peripheral swelling [Unknown]
  - Pruritus [Unknown]
  - Pain [Unknown]
  - Oropharyngeal pain [Unknown]
  - Pyrexia [Unknown]
  - Urticaria pressure [Unknown]
  - Hypoaesthesia [Unknown]
  - Contusion [Unknown]
  - Feeling abnormal [Unknown]
